FAERS Safety Report 6536847-5 (Version None)
Quarter: 2010Q1

REPORT INFORMATION
  Report Type: 
  Country: None (occurrence: None)
  Receive Date: 20100105
  Receipt Date: 20091222
  Transmission Date: 20100710
  Serious: Yes (Other)
  Sender: FDA-Public Use
  Company Number: 230437K09CAN

PATIENT
  Sex: Female

DRUGS (7)
  1. REBIF [Suspect]
     Indication: MULTIPLE SCLEROSIS
     Dosage: 44 MCG, 3 IN 1 WEEKS; 22 MCG, 3 IN 1 WEEKS; 44 MCG, 2 IN 1 WEEKS
     Dates: start: 19950821, end: 20081103
  2. REBIF [Suspect]
     Indication: MULTIPLE SCLEROSIS
     Dosage: 44 MCG, 3 IN 1 WEEKS; 22 MCG, 3 IN 1 WEEKS; 44 MCG, 2 IN 1 WEEKS
     Dates: start: 20081103, end: 20090101
  3. REBIF [Suspect]
     Indication: MULTIPLE SCLEROSIS
     Dosage: 44 MCG, 3 IN 1 WEEKS; 22 MCG, 3 IN 1 WEEKS; 44 MCG, 2 IN 1 WEEKS
     Dates: start: 20090101
  4. ALOTEC (ORCIPRENALINE SULFATE) [Concomitant]
  5. VITAMIN D [Concomitant]
  6. ADVIL [Concomitant]
  7. TYLENOL [Concomitant]

REACTIONS (8)
  - DISEASE PROGRESSION [None]
  - FATIGUE [None]
  - FEELING ABNORMAL [None]
  - INCISIONAL HERNIA [None]
  - INFLUENZA LIKE ILLNESS [None]
  - INJECTION SITE MASS [None]
  - MULTIPLE SCLEROSIS [None]
  - STRESS [None]
